FAERS Safety Report 15399766 (Version 1)
Quarter: 2018Q3

REPORT INFORMATION
  Report Type: Spontaneous
  Country: US (occurrence: US)
  Receive Date: 20180918
  Receipt Date: 20180918
  Transmission Date: 20181010
  Serious: Yes (Hospitalization, Other)
  Sender: FDA-Public Use
  Company Number: US-ALEXION-A201806802

PATIENT
  Sex: Female
  Weight: 61.8 kg

DRUGS (10)
  1. ARGATROBAN. [Concomitant]
     Active Substance: ARGATROBAN
     Indication: HEPARIN-INDUCED THROMBOCYTOPENIA
  2. HEPARIN [Concomitant]
     Active Substance: HEPARIN SODIUM
     Indication: PRODUCT USED FOR UNKNOWN INDICATION
     Route: 065
  3. FONDAPARINUX [Concomitant]
     Active Substance: FONDAPARINUX
     Indication: PERITONITIS
     Dosage: UNK
     Route: 065
  4. CEFTAZIDIME. [Concomitant]
     Active Substance: CEFTAZIDIME
     Indication: PRODUCT USED FOR UNKNOWN INDICATION
     Route: 042
  5. SOLIRIS [Suspect]
     Active Substance: ECULIZUMAB
     Indication: CRYOPYRIN ASSOCIATED PERIODIC SYNDROME
     Dosage: 1200 MG, QW
     Route: 042
     Dates: start: 20180525, end: 20180608
  6. SOLIRIS [Suspect]
     Active Substance: ECULIZUMAB
     Indication: OFF LABEL USE
  7. PREDNISONE. [Concomitant]
     Active Substance: PREDNISONE
     Indication: PERITONITIS
     Route: 065
  8. SOLU?MEDROL [Concomitant]
     Active Substance: METHYLPREDNISOLONE SODIUM SUCCINATE
     Indication: PRODUCT USED FOR UNKNOWN INDICATION
     Route: 042
  9. FLAGYL [Concomitant]
     Active Substance: METRONIDAZOLE\METRONIDAZOLE HYDROCHLORIDE
     Indication: PRODUCT USED FOR UNKNOWN INDICATION
     Route: 042
  10. ARGATROBAN. [Concomitant]
     Active Substance: ARGATROBAN
     Indication: THROMBOCYTOPENIA
     Dosage: UNK
     Route: 065

REACTIONS (5)
  - Heparin-induced thrombocytopenia [Unknown]
  - Intestinal ischaemia [Unknown]
  - Peritonitis [Unknown]
  - Off label use [Unknown]
  - Large intestine perforation [Unknown]

NARRATIVE: CASE EVENT DATE: 2018
